FAERS Safety Report 21880443 (Version 3)
Quarter: 2024Q3

REPORT INFORMATION
  Report Type: Spontaneous
  Country: US (occurrence: US)
  Receive Date: 20230118
  Receipt Date: 20240911
  Transmission Date: 20241016
  Serious: No
  Sender: TEVA
  Company Number: US-TEVA-2023-US-2844499

PATIENT
  Age: 19 Year

DRUGS (1)
  1. AJOVY [Suspect]
     Active Substance: FREMANEZUMAB-VFRM
     Indication: Product used for unknown indication
     Dosage: DOSAGE TEXT: 225/1.5 MG/ML/INJECTION (AUTOINJECTOR)
     Route: 065
     Dates: start: 202211

REACTIONS (6)
  - Injection site pain [Unknown]
  - Injection site haemorrhage [Unknown]
  - Drug dose omission by device [Unknown]
  - Nervousness [Unknown]
  - Feeling abnormal [Unknown]
  - Wrong technique in device usage process [Unknown]

NARRATIVE: CASE EVENT DATE: 20230103
